FAERS Safety Report 16669910 (Version 1)
Quarter: 2019Q3

REPORT INFORMATION
  Report Type: Spontaneous
  Country: US (occurrence: US)
  Receive Date: 20190620
  Receipt Date: 20190620
  Transmission Date: 20191004
  Serious: No
  Sender: FDA-Public Use
  Company Number: None

PATIENT
  Age: 58 Year
  Sex: Female

DRUGS (1)
  1. HUMIRA [Suspect]
     Active Substance: ADALIMUMAB
     Indication: RHEUMATOID ARTHRITIS
     Dosage: ?          OTHER FREQUENCY:2 WEEKS ;?
     Route: 058
     Dates: start: 20160212

REACTIONS (2)
  - Spinal operation [None]
  - Renal disorder [None]

NARRATIVE: CASE EVENT DATE: 20190525
